FAERS Safety Report 21784250 (Version 1)
Quarter: 2022Q4

REPORT INFORMATION
  Report Type: Spontaneous
  Country: US (occurrence: None)
  Receive Date: 20221223
  Receipt Date: 20221223
  Transmission Date: 20230113
  Serious: Yes (Death)
  Sender: FDA-Public Use
  Company Number: None

PATIENT
  Age: 65 Year
  Sex: Male
  Weight: 83.87 kg

DRUGS (11)
  1. SORAFENIB [Suspect]
     Active Substance: SORAFENIB
     Indication: Hepatocellular carcinoma
     Dosage: FREQUENCY : TWICE A DAY;?
     Route: 048
  2. METOPROLOL [Concomitant]
     Active Substance: METOPROLOL
  3. MONTELUKAST [Concomitant]
     Active Substance: MONTELUKAST SODIUM
  4. MORPHINE [Concomitant]
     Active Substance: MORPHINE
  5. PROMETHAZINE [Concomitant]
     Active Substance: PROMETHAZINE HYDROCHLORIDE
  6. SENNA [Concomitant]
     Active Substance: SENNA LEAF\SENNOSIDES\SENNOSIDES A AND B
  7. SERTRALINE [Concomitant]
     Active Substance: SERTRALINE HYDROCHLORIDE
  8. FEXOFENADINE [Concomitant]
     Active Substance: FEXOFENADINE HYDROCHLORIDE
  9. SPIRONOLACTONE [Concomitant]
     Active Substance: SPIRONOLACTONE
  10. VITAMIN D3 [Concomitant]
     Active Substance: CHOLECALCIFEROL
  11. XARELTO [Concomitant]
     Active Substance: RIVAROXABAN

REACTIONS (1)
  - Death [None]
